FAERS Safety Report 22631870 (Version 1)
Quarter: 2023Q2

REPORT INFORMATION
  Report Type: Report from Study
  Country: AR (occurrence: AR)
  Receive Date: 20230623
  Receipt Date: 20230623
  Transmission Date: 20230721
  Serious: Yes (Other)
  Sender: FDA-Public Use
  Company Number: AR-002147023-NVSC2019AR057672

PATIENT
  Age: 69 Year
  Sex: Male

DRUGS (2)
  1. TAFINLAR [Suspect]
     Active Substance: DABRAFENIB MESYLATE
     Indication: Metastatic malignant melanoma
     Dosage: 300 MG, QD
     Route: 048
     Dates: start: 20190829, end: 201910
  2. MEKINIST [Suspect]
     Active Substance: TRAMETINIB DIMETHYL SULFOXIDE
     Indication: Metastatic malignant melanoma
     Dosage: 2 MG, QD
     Route: 048
     Dates: start: 20190829, end: 201910

REACTIONS (15)
  - Syncope [Unknown]
  - Diabetes mellitus [Unknown]
  - Discomfort [Unknown]
  - Pyrexia [Unknown]
  - Bronchitis [Unknown]
  - Illness [Unknown]
  - Spleen atrophy [Unknown]
  - General physical health deterioration [Unknown]
  - Tachycardia [Unknown]
  - Blood pressure abnormal [Unknown]
  - Blood triglycerides increased [Unknown]
  - Inappropriate schedule of product administration [Unknown]
  - Drug resistance [Unknown]
  - Off label use [Unknown]
  - Drug intolerance [Unknown]

NARRATIVE: CASE EVENT DATE: 20191001
